FAERS Safety Report 9652119 (Version 1)
Quarter: 2013Q4

REPORT INFORMATION
  Report Type: Spontaneous
  Country: US (occurrence: None)
  Receive Date: 20131028
  Receipt Date: 20131028
  Transmission Date: 20140711
  Serious: Yes (Hospitalization)
  Sender: FDA-Public Use
  Company Number: None

PATIENT
  Age: 89 Year
  Sex: Male

DRUGS (1)
  1. MORPHINE [Suspect]
     Indication: SURGERY
     Dates: start: 20130320, end: 20130326

REACTIONS (2)
  - Lethargy [None]
  - Hypotension [None]
